FAERS Safety Report 9970027 (Version 2)
Quarter: 2015Q1

REPORT INFORMATION
  Report Type: Spontaneous
  Country: US (occurrence: None)
  Receive Date: 20140131
  Receipt Date: 20150129
  Transmission Date: 20150721
  Serious: Yes (Hospitalization)
  Sender: FDA-Public Use
  Company Number: 099708

PATIENT
  Age: 24 Year
  Sex: Male
  Weight: 63.5 kg

DRUGS (1)
  1. KEPPRA XR [Suspect]
     Active Substance: LEVETIRACETAM
     Indication: SEIZURE
     Dosage: ON PRODUCT FOR ABOUT 4 YEARS

REACTIONS (3)
  - Inappropriate schedule of drug administration [None]
  - Seizure [None]
  - Generalised tonic-clonic seizure [None]

NARRATIVE: CASE EVENT DATE: 20130925
